FAERS Safety Report 5235920-1 (Version None)
Quarter: 2007Q1

REPORT INFORMATION
  Report Type: 
  Country: None (occurrence: None)
  Receive Date: 20061208
  Receipt Date: 20051206
  Transmission Date: 20070707
  Serious: Yes (Other)
  Sender: FDA-Public Use
  Company Number: 2005UW18327

PATIENT
  Age: 43 Year
  Sex: Male

DRUGS (1)
  1. CRESTOR [Suspect]

REACTIONS (3)
  - ABDOMINAL PAIN UPPER [None]
  - BOWEL MOVEMENT IRREGULARITY [None]
  - FLATULENCE [None]
